FAERS Safety Report 10547595 (Version 7)
Quarter: 2014Q4

REPORT INFORMATION
  Report Type: Spontaneous
  Country: US (occurrence: US)
  Receive Date: 20141028
  Receipt Date: 20141223
  Transmission Date: 20150529
  Serious: Yes (Hospitalization, Other)
  Sender: FDA-Public Use
  Company Number: US-UNITED THERAPEUTICS-UNT-2014-008555

PATIENT
  Age: 58 Year
  Sex: Female
  Weight: 71.43 kg

DRUGS (7)
  1. TYVASO [Suspect]
     Active Substance: TREPROSTINIL
     Dosage: 18-54 MICROGRAMS, QID
     Dates: start: 20140929
  2. VELETRI [Suspect]
     Active Substance: EPOPROSTENOL
     Indication: PRODUCT USED FOR UNKNOWN INDICATION
  3. REVATIO [Suspect]
     Active Substance: SILDENAFIL CITRATE
     Indication: PRODUCT USED FOR UNKNOWN INDICATION
  4. TYVASO [Suspect]
     Active Substance: TREPROSTINIL
     Indication: PULMONARY ARTERIAL HYPERTENSION
     Dosage: 18-54 MICROGRAMS, QID
     Dates: start: 20140929
  5. TYVASO [Suspect]
     Active Substance: TREPROSTINIL
     Dosage: 18-54 MICROGRAMS, QID
     Dates: start: 20140929
  6. TYVASO [Suspect]
     Active Substance: TREPROSTINIL
     Dosage: 18-54 MICROGRAMS, QID
     Dates: start: 20141027
  7. TYVASO [Suspect]
     Active Substance: TREPROSTINIL
     Dosage: 18-54 MICROGRAMS, QID
     Dates: start: 20141027

REACTIONS (22)
  - Somnolence [Unknown]
  - Urticaria [Recovering/Resolving]
  - Pallor [Unknown]
  - Dyspnoea exertional [Unknown]
  - Injection site nodule [Unknown]
  - Splenomegaly [Unknown]
  - Asthenia [Unknown]
  - Pancreatic disorder [Unknown]
  - Injection site infection [Unknown]
  - Hepatomegaly [Unknown]
  - Cough [Recovered/Resolved]
  - Headache [Recovering/Resolving]
  - Skin irritation [Recovering/Resolving]
  - Depression [Unknown]
  - Injection site erythema [Unknown]
  - Epistaxis [Recovering/Resolving]
  - Condition aggravated [Unknown]
  - Malaise [Unknown]
  - Device related infection [Unknown]
  - Contusion [Recovering/Resolving]
  - Fatigue [Unknown]
  - Throat tightness [Unknown]

NARRATIVE: CASE EVENT DATE: 2014
